FAERS Safety Report 14556622 (Version 4)
Quarter: 2018Q3

REPORT INFORMATION
  Report Type: Spontaneous
  Country: US (occurrence: US)
  Receive Date: 20180221
  Receipt Date: 20180710
  Transmission Date: 20181010
  Serious: Yes (Death, Other)
  Sender: FDA-Public Use
  Company Number: US-PFIZER INC-2018067661

PATIENT
  Age: 65 Year
  Sex: Female

DRUGS (5)
  1. AMLODIPINE BESYLATE. [Concomitant]
     Active Substance: AMLODIPINE BESYLATE
     Dosage: UNK
  2. KLOR?CON M20 [Concomitant]
     Active Substance: POTASSIUM CHLORIDE
     Dosage: UNK
  3. SUTENT [Suspect]
     Active Substance: SUNITINIB MALATE
     Indication: OESTROGEN RECEPTOR POSITIVE BREAST CANCER
     Dosage: 50 MG, CYCLIC [TAKE 1 CAPSULE BY MOUTH EVERY DAY FOR 4 WEEKS ON THEN 2 WEEKS OFF]
     Route: 048
     Dates: start: 201801
  4. SUTENT [Suspect]
     Active Substance: SUNITINIB MALATE
     Dosage: 50 MG, CYCLIC [TAKE 1 CAPSULE BY MOUTH EVERY DAY FOR 4 WEEKS ON THEN 2 WEEKS OFF]
     Route: 048
     Dates: start: 20180108
  5. FUROSEMIDE. [Concomitant]
     Active Substance: FUROSEMIDE
     Dosage: UNK

REACTIONS (6)
  - Influenza [Not Recovered/Not Resolved]
  - Death [Fatal]
  - Product use in unapproved indication [Unknown]
  - Blister [Unknown]
  - Oral pain [Unknown]
  - Fatigue [Not Recovered/Not Resolved]

NARRATIVE: CASE EVENT DATE: 2018
